FAERS Safety Report 4512241-3 (Version None)
Quarter: 2004Q4

REPORT INFORMATION
  Report Type: 
  Country: None (occurrence: None)
  Receive Date: 20041123
  Receipt Date: 20041108
  Transmission Date: 20050328
  Serious: No
  Sender: FDA-Public Use
  Company Number: 240392

PATIENT
  Age: 45 Year
  Sex: Male
  Weight: 75 kg

DRUGS (5)
  1. MIXTARD 30 (INSULIN HUMAN) SUSPENSION FOR INJECTION [Suspect]
     Indication: INSULIN-REQUIRING TYPE II DIABETES MELLITUS
     Dosage: SEE IMAGE
     Dates: start: 20020101, end: 20041003
  2. MIXTARD 30 (INSULIN HUMAN) SUSPENSION FOR INJECTION [Suspect]
     Indication: INSULIN-REQUIRING TYPE II DIABETES MELLITUS
     Dosage: SEE IMAGE
     Dates: start: 20041004
  3. GLUCOPHAGE [Concomitant]
  4. ENALAPRIL (ENALAPRIL) [Concomitant]
  5. ASPIRIN [Concomitant]

REACTIONS (7)
  - EXCORIATION [None]
  - FALL [None]
  - LOSS OF CONSCIOUSNESS [None]
  - NAUSEA [None]
  - PARAESTHESIA ORAL [None]
  - PERIORBITAL HAEMATOMA [None]
  - PRURITUS GENERALISED [None]
